FAERS Safety Report 7960859-8 (Version None)
Quarter: 2011Q4

REPORT INFORMATION
  Report Type: 
  Country: None (occurrence: None)
  Receive Date: 20111207
  Receipt Date: 20111202
  Transmission Date: 20120403
  Serious: Yes (Death)
  Sender: FDA-Public Use
  Company Number: US-AMGEN-USASP2011064482

PATIENT
  Age: 77 Year
  Sex: Female

DRUGS (3)
  1. DACOGEN [Concomitant]
     Indication: IDIOPATHIC THROMBOCYTOPENIC PURPURA
  2. VIDAZA [Concomitant]
     Indication: IDIOPATHIC THROMBOCYTOPENIC PURPURA
  3. NPLATE [Suspect]
     Indication: IDIOPATHIC THROMBOCYTOPENIC PURPURA
     Dates: start: 20111024

REACTIONS (2)
  - MYELODYSPLASTIC SYNDROME [None]
  - DISEASE PROGRESSION [None]
